FAERS Safety Report 5044090-4 (Version None)
Quarter: 2006Q2

REPORT INFORMATION
  Report Type: 
  Country: None (occurrence: None)
  Receive Date: 20060601
  Receipt Date: 20060220
  Transmission Date: 20061013
  Serious: No
  Sender: FDA-Public Use
  Company Number: 2006PV008962

PATIENT
  Age: 63 Year
  Sex: Male
  Weight: 94.3482 kg

DRUGS (5)
  1. BYETTA [Suspect]
     Indication: DIABETES MELLITUS NON-INSULIN-DEPENDENT
     Dosage: SEE IMAGE
     Route: 058
     Dates: start: 20060110, end: 20060210
  2. BYETTA [Suspect]
     Indication: DIABETES MELLITUS NON-INSULIN-DEPENDENT
     Dosage: SEE IMAGE
     Route: 058
     Dates: start: 20060211
  3. ACTOS [Concomitant]
  4. GLYBURIDE [Concomitant]
  5. METFORMIN [Concomitant]

REACTIONS (3)
  - DECREASED APPETITE [None]
  - DIZZINESS [None]
  - WEIGHT DECREASED [None]
